FAERS Safety Report 13427047 (Version 11)
Quarter: 2019Q4

REPORT INFORMATION
  Report Type: Report from Study
  Country: ES (occurrence: ES)
  Receive Date: 20170411
  Receipt Date: 20191220
  Transmission Date: 20200122
  Serious: Yes (Other)
  Sender: FDA-Public Use
  Company Number: ES-ROCHE-1875416

PATIENT
  Age: 33 Year
  Sex: Female
  Weight: 52.5 kg

DRUGS (10)
  1. PARACETAMOL [Concomitant]
     Active Substance: ACETAMINOPHEN
     Indication: PREMEDICATION
     Route: 048
     Dates: start: 20170330, end: 20170330
  2. MONUROL [Concomitant]
     Active Substance: FOSFOMYCIN TROMETHAMINE
     Indication: URINARY TRACT INFECTION
     Route: 048
     Dates: start: 20161130, end: 20161130
  3. FERINJECT [Concomitant]
     Active Substance: FERRIC CARBOXYMALTOSE
     Route: 042
     Dates: start: 20171030, end: 20171030
  4. METHYLPREDNISOLONE. [Suspect]
     Active Substance: METHYLPREDNISOLONE
     Dosage: PRIOR TO DOSE OF OCRELIZUMAB AS PER PROTOCOL?DATE OF LAST DOSE PRIOT TO THE ONSET OF HEPATITIS: 07/D
     Route: 042
     Dates: start: 20161207, end: 20161207
  5. COULDINA INSTANT CON PARACETAMOL [Concomitant]
     Indication: DISCOMFORT
     Dosage: (650 MG PARACETAMOL)
     Route: 048
     Dates: start: 20161212, end: 20161212
  6. OCRELIZUMAB. [Suspect]
     Active Substance: OCRELIZUMAB
     Indication: RELAPSING-REMITTING MULTIPLE SCLEROSIS
     Dosage: OCRELIZUMAB WILL BE ADMINISTERED AS TWO 300 MG IV INFUSIONS ON DAYS 1 AND 15 FOLLOWED BY ONE 600 MG
     Route: 042
     Dates: start: 20161207
  7. PARACETAMOL [Concomitant]
     Active Substance: ACETAMINOPHEN
     Indication: NASOPHARYNGITIS
     Dosage: ONCE BEFORE INFUSION
     Route: 065
     Dates: start: 20161207, end: 20161207
  8. METHYLPREDNISOLONE. [Suspect]
     Active Substance: METHYLPREDNISOLONE
     Indication: PREMEDICATION
     Dosage: 1G/24H FOR THE FIRST FOUR DAYS?500MG/24H FOR THE 5TH DAY
     Route: 065
     Dates: start: 20160307, end: 20160311
  9. PARACETAMOL [Concomitant]
     Active Substance: ACETAMINOPHEN
     Route: 048
     Dates: start: 20170331
  10. POLARAMINE [Concomitant]
     Active Substance: DEXCHLORPHENIRAMINE MALEATE
     Indication: PREMEDICATION
     Dosage: ONCE BEFORE INFUSION
     Route: 065
     Dates: start: 20161207, end: 20161207

REACTIONS (1)
  - Hepatitis [Recovered/Resolved]

NARRATIVE: CASE EVENT DATE: 20161219
